FAERS Safety Report 22274978 (Version 1)
Quarter: 2023Q2

REPORT INFORMATION
  Report Type: Spontaneous
  Country: CL (occurrence: CL)
  Receive Date: 20230502
  Receipt Date: 20230502
  Transmission Date: 20230721
  Serious: Yes (Other)
  Sender: FDA-Public Use
  Company Number: CL-ELI_LILLY_AND_COMPANY-CL202304011694

PATIENT
  Age: 58 Year
  Sex: Male

DRUGS (2)
  1. CYRAMZA [Suspect]
     Active Substance: RAMUCIRUMAB
     Indication: Gastric cancer stage IV
     Dosage: 8 MG, OTHER (EVERY 15 DAYS)
     Route: 042
     Dates: start: 202212, end: 202303
  2. PACLITAXEL [Suspect]
     Active Substance: PACLITAXEL
     Indication: Gastric cancer stage IV
     Dosage: 175 MG/M2, OTHER (EVERY 21 DAYS)
     Route: 042
     Dates: start: 202212, end: 202303

REACTIONS (2)
  - Ascites [Unknown]
  - Intestinal pseudo-obstruction [Unknown]

NARRATIVE: CASE EVENT DATE: 20230301
